FAERS Safety Report 7295504-0 (Version None)
Quarter: 2011Q1

REPORT INFORMATION
  Report Type: 
  Country: None (occurrence: None)
  Receive Date: 20110207
  Receipt Date: 20110124
  Transmission Date: 20110831
  Serious: Yes (Hospitalization, Other)
  Sender: FDA-Public Use
  Company Number: 2011AP000117

PATIENT
  Age: 60 Year
  Sex: Female

DRUGS (11)
  1. ZOPICLONE (ZOPICLONE) [Suspect]
     Indication: SLEEP DISORDER
     Dosage: 3.75 MG
  2. PROMETHAZINE [Suspect]
     Indication: ANXIETY
  3. PROMETHAZINE [Suspect]
     Indication: SLEEP DISORDER
  4. DOSULEPIN (DOSULEPIN) [Suspect]
     Indication: DEPRESSION
     Dosage: 50 MG;QD
  5. CITALOPRAM (CITALOPRAM) [Suspect]
     Indication: PRODUCT USED FOR UNKNOWN INDICATION
  6. SIMVASTATIN [Suspect]
     Indication: PRODUCT USED FOR UNKNOWN INDICATION
     Dosage: 20 MG
  7. LYRICA [Suspect]
     Indication: GENERALISED ANXIETY DISORDER
     Dosage: 50 MG;TID ; 100 MG;TID ; 100 MG;AM ; 50 MG;AF ; 50 MG;PM
     Dates: start: 20100501
  8. ATENOLOL [Suspect]
     Indication: PRODUCT USED FOR UNKNOWN INDICATION
     Dosage: 25 MG;QD
  9. SERTRALINE HYDROCHLORIDE [Suspect]
     Indication: PRODUCT USED FOR UNKNOWN INDICATION
     Dosage: 100 MG ; 100 MG;QD ; 150 MG
  10. ASPIRIN [Suspect]
     Indication: PRODUCT USED FOR UNKNOWN INDICATION
     Dosage: 75 MG;QD
  11. DIAZEPAM [Suspect]
     Indication: PRODUCT USED FOR UNKNOWN INDICATION

REACTIONS (26)
  - ANAEMIA [None]
  - DEPRESSION [None]
  - PANIC ATTACK [None]
  - TREMOR [None]
  - AGGRESSION [None]
  - URINARY TRACT INFECTION [None]
  - INSOMNIA [None]
  - MYALGIA [None]
  - MUSCLE TWITCHING [None]
  - ORAL DISCOMFORT [None]
  - LETHARGY [None]
  - SUICIDAL IDEATION [None]
  - ANXIETY [None]
  - PAIN [None]
  - VOMITING [None]
  - CONFUSIONAL STATE [None]
  - NAUSEA [None]
  - DECREASED APPETITE [None]
  - DIARRHOEA [None]
  - SYNCOPE [None]
  - MUSCLE ATROPHY [None]
  - OVERDOSE [None]
  - HYPOCHONDRIASIS [None]
  - WEIGHT DECREASED [None]
  - ADJUSTMENT DISORDER [None]
  - MACROCYTOSIS [None]
